FAERS Safety Report 7480425-0 (Version None)
Quarter: 2011Q2

REPORT INFORMATION
  Report Type: 
  Country: None (occurrence: None)
  Receive Date: 20110512
  Receipt Date: 20110512
  Transmission Date: 20111010
  Serious: Yes (Hospitalization)
  Sender: FDA-Public Use
  Company Number: None

PATIENT
  Age: 80 Year
  Sex: Male
  Weight: 129 kg

DRUGS (3)
  1. AMOXICILLIN [Suspect]
     Indication: UPPER RESPIRATORY TRACT INFECTION
     Dosage: 500 MG QID PO
     Route: 048
     Dates: start: 20101207, end: 20101208
  2. AMOXICILLIN [Suspect]
     Indication: CONDITION AGGRAVATED
     Dosage: 500 MG QID PO
     Route: 048
     Dates: start: 20101207, end: 20101208
  3. AMOXICILLIN [Suspect]
     Indication: CHRONIC OBSTRUCTIVE PULMONARY DISEASE
     Dosage: 500 MG QID PO
     Route: 048
     Dates: start: 20101207, end: 20101208

REACTIONS (2)
  - ANGIOEDEMA [None]
  - LARYNGEAL OEDEMA [None]
